FAERS Safety Report 15054078 (Version 1)
Quarter: 2018Q2

REPORT INFORMATION
  Report Type: Spontaneous
  Country: US (occurrence: US)
  Receive Date: 20180622
  Receipt Date: 20180622
  Transmission Date: 20180711
  Serious: No
  Sender: FDA-Public Use
  Company Number: US-ELI_LILLY_AND_COMPANY-US201806005750

PATIENT
  Sex: Female

DRUGS (2)
  1. TALTZ [Suspect]
     Active Substance: IXEKIZUMAB
     Indication: PSORIASIS
     Dosage: UNK, LOADING DOSE
     Route: 058
     Dates: start: 2017
  2. TALTZ [Suspect]
     Active Substance: IXEKIZUMAB
     Dosage: UNK, MAINTENANCE DOSING
     Route: 065

REACTIONS (1)
  - Psoriasis [Unknown]
